FAERS Safety Report 12059711 (Version 1)
Quarter: 2016Q1

REPORT INFORMATION
  Report Type: Spontaneous
  Country: US (occurrence: None)
  Receive Date: 20160209
  Receipt Date: 20160209
  Transmission Date: 20160526
  Serious: No
  Sender: FDA-Public Use
  Company Number: None

PATIENT
  Sex: Male

DRUGS (19)
  1. ASPIRIN. [Concomitant]
     Active Substance: ASPIRIN
  2. VALTREX [Concomitant]
     Active Substance: VALACYCLOVIR HYDROCHLORIDE
  3. ZANTAC [Concomitant]
     Active Substance: RANITIDINE HYDROCHLORIDE
  4. ATACAND [Concomitant]
     Active Substance: CANDESARTAN CILEXETIL
  5. PREDNISONE. [Concomitant]
     Active Substance: PREDNISONE
  6. HYDROCO/APAP [Concomitant]
     Active Substance: ACETAMINOPHEN\HYDROCODONE
  7. XANAX [Concomitant]
     Active Substance: ALPRAZOLAM
  8. NEXIUM [Concomitant]
     Active Substance: ESOMEPRAZOLE MAGNESIUM
  9. AMOXICILLIN. [Concomitant]
     Active Substance: AMOXICILLIN
  10. CANDESARTAN [Concomitant]
     Active Substance: CANDESARTAN
  11. LOPRESSOR [Concomitant]
     Active Substance: METOPROLOL TARTRATE
  12. ZETIA [Concomitant]
     Active Substance: EZETIMIBE
  13. PENICILLIN [Concomitant]
     Active Substance: PENICILLIN
  14. PANTOPRAZOLE [Concomitant]
     Active Substance: PANTOPRAZOLE SODIUM
  15. ENBREL [Suspect]
     Active Substance: ETANERCEPT
     Indication: PSORIASIS
     Route: 058
     Dates: start: 20090616
  16. TRAMADOL. [Concomitant]
     Active Substance: TRAMADOL
  17. LIPITOR [Concomitant]
     Active Substance: ATORVASTATIN CALCIUM
  18. CLOTRIMAZOLE. [Concomitant]
     Active Substance: CLOTRIMAZOLE
  19. ATORVASTATIN [Concomitant]
     Active Substance: ATORVASTATIN

REACTIONS (1)
  - Condition aggravated [None]

NARRATIVE: CASE EVENT DATE: 2016
